FAERS Safety Report 21268571 (Version 1)
Quarter: 2022Q3

REPORT INFORMATION
  Report Type: Spontaneous
  Country: US (occurrence: US)
  Receive Date: 20220830
  Receipt Date: 20220830
  Transmission Date: 20221026
  Serious: No
  Sender: FDA-Public Use
  Company Number: US-ALKEM LABORATORIES LIMITED-US-ALKEM-2022-07685

PATIENT
  Sex: Female

DRUGS (1)
  1. DROXIDOPA [Suspect]
     Active Substance: DROXIDOPA
     Indication: Multiple system atrophy
     Dosage: 100 MILLIGRAM (8 CAPSULES A DAY)
     Route: 048
     Dates: start: 20220201

REACTIONS (1)
  - Drug ineffective [Unknown]
